FAERS Safety Report 22284491 (Version 1)
Quarter: 2023Q2

REPORT INFORMATION
  Report Type: Spontaneous
  Country: CN (occurrence: CN)
  Receive Date: 20230504
  Receipt Date: 20230504
  Transmission Date: 20230722
  Serious: Yes (Other)
  Sender: FDA-Public Use
  Company Number: None

PATIENT
  Age: 33 Year
  Sex: Male
  Weight: 60 kg

DRUGS (12)
  1. CYCLOPHOSPHAMIDE [Suspect]
     Active Substance: CYCLOPHOSPHAMIDE
     Indication: Chemotherapy
     Dosage: 1.2 G, QD, DILUTED WITH 0.9 % SODIUM CHLORIDE (500 ML), (MORE THAN 3 HOURS)
     Route: 041
     Dates: start: 20230412, end: 20230412
  2. CYCLOPHOSPHAMIDE [Suspect]
     Active Substance: CYCLOPHOSPHAMIDE
     Indication: T-cell lymphoma
  3. SODIUM CHLORIDE [Suspect]
     Active Substance: SODIUM CHLORIDE
     Indication: Medication dilution
     Dosage: 500 ML, QD, CONCENTRATION: 0.9%, DOSAGE FORM: INJECTION USED TO DILUTE CYCLOPHOSPHAMIDE (1.2 G), (MO
     Route: 041
     Dates: start: 20230412, end: 20230412
  4. SODIUM CHLORIDE [Suspect]
     Active Substance: SODIUM CHLORIDE
     Dosage: 500 ML, QD, CONCENTRATION: 0.9%, DOSAGE FORM: INJECTION USED TO DILUTE VINCRISTINE SULFATE (2 MG)
     Route: 041
     Dates: start: 20230412, end: 20230412
  5. SODIUM CHLORIDE [Suspect]
     Active Substance: SODIUM CHLORIDE
     Dosage: 500 ML, QD, CONCENTRATION: 0.9%, DOSAGE FORM: INJECTION USED TO DILUTE ETOPOSIDE (0.1 G)
     Route: 041
     Dates: start: 20230412, end: 20230414
  6. DEXTROSE [Suspect]
     Active Substance: DEXTROSE\DEXTROSE MONOHYDRATE
     Indication: Medication dilution
     Dosage: 250 ML, QD, CONCENTRATION: 5%, DOSAGE FORM: INJECTION USED TO DILUTE PIRARUBICIN HYDROCHLORIDE (80 M
     Route: 041
     Dates: start: 20230412, end: 20230412
  7. ETOPOSIDE [Suspect]
     Active Substance: ETOPOSIDE
     Indication: Chemotherapy
     Dosage: 0.1 G, QD, DILUTED WITH 0.9% SODIUM CHLORIDE (500 ML)
     Route: 041
     Dates: start: 20230412, end: 20230414
  8. ETOPOSIDE [Suspect]
     Active Substance: ETOPOSIDE
     Indication: T-cell lymphoma
  9. PIRARUBICIN HYDROCHLORIDE [Suspect]
     Active Substance: PIRARUBICIN HYDROCHLORIDE
     Indication: Chemotherapy
     Dosage: 80 MG, QD, DOSAGE FORM: POWDER DILUTED WITH 5% GLUCOSE (250 ML),
     Route: 041
     Dates: start: 20230412, end: 20230412
  10. PIRARUBICIN HYDROCHLORIDE [Suspect]
     Active Substance: PIRARUBICIN HYDROCHLORIDE
     Indication: T-cell lymphoma
  11. VINCRISTINE SULFATE [Suspect]
     Active Substance: VINCRISTINE SULFATE
     Indication: Chemotherapy
     Dosage: 2 MG, QD,  DOSAGE FORM: POWDER DILUTED WITH 0.9% SODIUM CHLORIDE (500 ML)
     Route: 041
     Dates: start: 20230412, end: 20230412
  12. VINCRISTINE SULFATE [Suspect]
     Active Substance: VINCRISTINE SULFATE
     Indication: T-cell lymphoma

REACTIONS (2)
  - Drug-induced liver injury [Unknown]
  - Hepatic enzyme abnormal [Unknown]

NARRATIVE: CASE EVENT DATE: 20230417
